FAERS Safety Report 24097621 (Version 1)
Quarter: 2024Q3

REPORT INFORMATION
  Report Type: Spontaneous
  Country: US (occurrence: None)
  Receive Date: 20240715
  Receipt Date: 20240715
  Transmission Date: 20241016
  Serious: Yes (Other)
  Sender: Public
  Company Number: None

PATIENT
  Age: 74 Year
  Sex: Female
  Weight: 117 kg

DRUGS (12)
  1. MELOXICAM [Suspect]
     Active Substance: MELOXICAM
     Indication: Arthritis
     Dosage: OTHER QUANTITY : 1 TABLET(S);?
     Route: 048
     Dates: start: 20240620, end: 20240711
  2. MELOXICAM [Suspect]
     Active Substance: MELOXICAM
     Indication: Inflammation
  3. BUSPIRONE [Concomitant]
     Active Substance: BUSPIRONE HYDROCHLORIDE
  4. GABAPENTIN [Concomitant]
     Active Substance: GABAPENTIN
  5. Doxycline Monohydrate [Concomitant]
  6. DULOXETINE [Concomitant]
     Active Substance: DULOXETINE
  7. FISH OIL [Concomitant]
     Active Substance: FISH OIL
  8. VITAMIN D3 [Concomitant]
     Active Substance: CHOLECALCIFEROL
  9. VITAMIN B12 [Concomitant]
     Active Substance: CYANOCOBALAMIN
  10. MELATONIN [Concomitant]
     Active Substance: MELATONIN
  11. METAMUCIL [Concomitant]
     Active Substance: PLANTAGO SEED
  12. CLEAR LAX [Concomitant]
     Active Substance: POLYETHYLENE GLYCOL 3350

REACTIONS (4)
  - Depression [None]
  - Suicidal ideation [None]
  - Agitation [None]
  - Anger [None]

NARRATIVE: CASE EVENT DATE: 20240710
